FAERS Safety Report 14266120 (Version 3)
Quarter: 2017Q4

REPORT INFORMATION
  Report Type: Spontaneous
  Country: FR (occurrence: FR)
  Receive Date: 20171209
  Receipt Date: 20171227
  Transmission Date: 20180321
  Serious: Yes (Hospitalization, Other)
  Sender: FDA-Public Use
  Company Number: FR-MYLANLABS-2017M1076879

PATIENT
  Age: 79 Year
  Sex: Male

DRUGS (6)
  1. METHOTREXATE. [Suspect]
     Active Substance: METHOTREXATE
     Indication: SPONDYLITIS
     Dosage: 20 MG, QW, LOW DOSE
     Route: 065
  2. METFORMIN [Concomitant]
     Active Substance: METFORMIN HYDROCHLORIDE
     Indication: TYPE 2 DIABETES MELLITUS
     Route: 065
  3. CEFTRIAXONE. [Concomitant]
     Active Substance: CEFTRIAXONE
     Indication: PRODUCT USED FOR UNKNOWN INDICATION
     Route: 065
  4. METHOTREXATE. [Suspect]
     Active Substance: METHOTREXATE
     Indication: SPONDYLITIS
  5. CELIPROLOL [Concomitant]
     Active Substance: CELIPROLOL
     Indication: HYPERTENSION
     Route: 065
  6. SULFAMETHOXAZOLE AND TRIMETHOPRIM [Concomitant]
     Active Substance: SULFAMETHOXAZOLE\TRIMETHOPRIM
     Indication: PRODUCT USED FOR UNKNOWN INDICATION
     Route: 065

REACTIONS (15)
  - Disorientation [Recovered/Resolved with Sequelae]
  - Confusional state [Recovered/Resolved with Sequelae]
  - Aggression [Unknown]
  - Memory impairment [Unknown]
  - Coma [Recovering/Resolving]
  - Epstein-Barr virus infection [Unknown]
  - Herpes simplex [Recovered/Resolved with Sequelae]
  - Infection reactivation [Recovered/Resolved with Sequelae]
  - CSF protein increased [Recovered/Resolved with Sequelae]
  - Aphasia [Recovered/Resolved with Sequelae]
  - Electroencephalogram abnormal [Recovered/Resolved with Sequelae]
  - Coma scale abnormal [Recovering/Resolving]
  - Pyrexia [Recovered/Resolved with Sequelae]
  - Disturbance in attention [Unknown]
  - Herpes simplex encephalitis [Recovered/Resolved with Sequelae]
